FAERS Safety Report 9199800 (Version 1)
Quarter: 2013Q1

REPORT INFORMATION
  Report Type: Spontaneous
  Country: CA (occurrence: CA)
  Receive Date: 20130329
  Receipt Date: 20130329
  Transmission Date: 20140127
  Serious: Yes (Life-Threatening, Hospitalization)
  Sender: FDA-Public Use
  Company Number: CA-ELI_LILLY_AND_COMPANY-CA201303008040

PATIENT
  Age: 74 Year
  Sex: Male

DRUGS (21)
  1. FORTEO [Suspect]
     Indication: OSTEOPOROSIS
     Dosage: 20 UG, QD
     Route: 058
     Dates: start: 20120216
  2. GLUCOSAMINE [Concomitant]
  3. FOLIC ACID [Concomitant]
  4. ALLOPURINOL [Concomitant]
  5. LOSARTAN [Concomitant]
  6. TAMSULOSIN [Concomitant]
  7. METOPROLOL [Concomitant]
  8. FERROUS GLUCONATE [Concomitant]
  9. SODIUM TARTRATE [Concomitant]
  10. CALCIUM CARBONATE [Concomitant]
  11. LASIX [Concomitant]
  12. GABAPENTIN [Concomitant]
  13. ESCITALOPRAM [Concomitant]
  14. METFORMIN [Concomitant]
  15. SENOKOT [Concomitant]
  16. LEVOTHYROXINE [Concomitant]
  17. CLOPIDOGREL [Concomitant]
  18. ASA [Concomitant]
  19. DOCUSATE SODIUM [Concomitant]
  20. ZYTRAM XL [Concomitant]
  21. TRAMADOL [Concomitant]

REACTIONS (3)
  - Disorientation [Not Recovered/Not Resolved]
  - Aphasia [Not Recovered/Not Resolved]
  - Muscular weakness [Not Recovered/Not Resolved]
